FAERS Safety Report 13008587 (Version 1)
Quarter: 2016Q4

REPORT INFORMATION
  Report Type: Spontaneous
  Country: US (occurrence: US)
  Receive Date: 20161208
  Receipt Date: 20161208
  Transmission Date: 20170207
  Serious: No
  Sender: FDA-Public Use
  Company Number: US-PFIZER INC-2016559796

PATIENT
  Age: 39 Year
  Sex: Female
  Weight: 48.73 kg

DRUGS (1)
  1. IBRANCE [Suspect]
     Active Substance: PALBOCICLIB
     Indication: BREAST CANCER METASTATIC
     Dosage: 125 MG, CYCLIC, (1-21Q28 DAYS)
     Route: 048
     Dates: start: 20160916

REACTIONS (5)
  - Oral pain [Unknown]
  - Laboratory test abnormal [Unknown]
  - Tongue discolouration [Unknown]
  - Tongue discomfort [Unknown]
  - Stomatitis [Unknown]
